FAERS Safety Report 9844332 (Version 1)
Quarter: 2014Q1

REPORT INFORMATION
  Report Type: Report from Study
  Country: US (occurrence: US)
  Receive Date: 20140127
  Receipt Date: 20140127
  Transmission Date: 20141002
  Serious: Yes (Hospitalization)
  Sender: FDA-Public Use
  Company Number: US-ROCHE-1335537

PATIENT
  Age: 60 Year
  Sex: Male

DRUGS (8)
  1. RIBAVIRIN [Suspect]
     Indication: HEPATITIS C
     Route: 048
     Dates: start: 20130905, end: 20131027
  2. SOFOSBUVIR [Suspect]
     Indication: HEPATITIS C
     Route: 048
     Dates: start: 20130905, end: 20131027
  3. PROGRAF [Concomitant]
     Route: 065
     Dates: start: 20130314
  4. PROTONIX (PANTOPRAZOLE SODIUM) [Concomitant]
     Route: 065
     Dates: start: 2011
  5. PROZAC [Concomitant]
     Route: 065
     Dates: start: 2011
  6. LOMOTIL (UNITED STATES) [Concomitant]
  7. CELEXA (UNITED STATES) [Concomitant]
  8. ZOFRAN [Concomitant]
     Route: 065
     Dates: start: 2013

REACTIONS (2)
  - Liver function test abnormal [Not Recovered/Not Resolved]
  - Jaundice [Not Recovered/Not Resolved]
